FAERS Safety Report 22120266 (Version 1)
Quarter: 2023Q1

REPORT INFORMATION
  Report Type: Spontaneous
  Country: FR (occurrence: FR)
  Receive Date: 20230321
  Receipt Date: 20230321
  Transmission Date: 20230417
  Serious: Yes (Hospitalization)
  Sender: FDA-Public Use
  Company Number: None

PATIENT
  Age: 18 Year
  Sex: Female
  Weight: 74 kg

DRUGS (2)
  1. ZOLOFT [Suspect]
     Active Substance: SERTRALINE HYDROCHLORIDE
     Indication: Product used for unknown indication
     Dosage: 450 MILLIGRAM, TOTAL
     Route: 048
     Dates: start: 20211115, end: 20211115
  2. ATARAX [Suspect]
     Active Substance: HYDROXYZINE HYDROCHLORIDE
     Indication: Product used for unknown indication
     Dosage: 225 MILLIGRAM, TOTAL
     Route: 048
     Dates: start: 20211115, end: 20211115

REACTIONS (3)
  - Supraventricular tachycardia [Unknown]
  - Vomiting [Unknown]
  - Intentional overdose [Recovered/Resolved]

NARRATIVE: CASE EVENT DATE: 20211115
